FAERS Safety Report 8433584-7 (Version None)
Quarter: 2012Q2

REPORT INFORMATION
  Report Type: 
  Country: None (occurrence: None)
  Receive Date: 20120323
  Receipt Date: 20111027
  Transmission Date: 20120825
  Serious: Yes (Other)
  Sender: FDA-Public Use
  Company Number: 163-21880-11071923

PATIENT
  Age: 68 Year
  Sex: Male

DRUGS (4)
  1. REVLIMID [Suspect]
     Indication: MULTIPLE MYELOMA
     Dosage: 25 MG, 1 IN 1 D, PO; 15 MG, 1 IN 1 D, PO; 15 MG, Q 48 HRS, PO
     Route: 048
     Dates: start: 20110422
  2. REVLIMID [Suspect]
     Indication: MULTIPLE MYELOMA
     Dosage: 25 MG, 1 IN 1 D, PO; 15 MG, 1 IN 1 D, PO; 15 MG, Q 48 HRS, PO
     Route: 048
     Dates: start: 20110916
  3. REVLIMID [Suspect]
     Indication: MULTIPLE MYELOMA
     Dosage: 25 MG, 1 IN 1 D, PO; 15 MG, 1 IN 1 D, PO; 15 MG, Q 48 HRS, PO
     Route: 048
     Dates: start: 20110622
  4. HYDROCODONE-ACETAMINOPHEN (REMEDEINE) [Concomitant]

REACTIONS (2)
  - FATIGUE [None]
  - ANAEMIA [None]
